FAERS Safety Report 9110835 (Version 1)
Quarter: 2013Q1

REPORT INFORMATION
  Report Type: Spontaneous
  Country: US (occurrence: US)
  Receive Date: 20130219
  Receipt Date: 20130219
  Transmission Date: 20140127
  Serious: No
  Sender: FDA-Public Use
  Company Number: US-BRISTOL-MYERS SQUIBB COMPANY-16369217

PATIENT
  Age: 88 Year
  Sex: Female
  Weight: 54 kg

DRUGS (1)
  1. ORENCIA [Suspect]
     Indication: RHEUMATOID ARTHRITIS
     Dosage: LAST INF:21DEC2011
     Route: 042
     Dates: start: 200908

REACTIONS (4)
  - Infection [Unknown]
  - Pain in extremity [Unknown]
  - Body height decreased [Unknown]
  - Back pain [Recovered/Resolved]
